FAERS Safety Report 4283468-3 (Version None)
Quarter: 2004Q1

REPORT INFORMATION
  Report Type: 
  Country: None (occurrence: None)
  Receive Date: 20040120
  Receipt Date: 20030716
  Transmission Date: 20041129
  Serious: Yes (Hospitalization)
  Sender: FDA-Public Use
  Company Number: US-JNJFOC-20030705369

PATIENT
  Age: 27 Year
  Sex: Female
  Weight: 75.2971 kg

DRUGS (1)
  1. PARAGARD T 380A (INTRAUTERINE CONTRACEPTIVE DEVICE) INTRAUTERINE DEVIC [Suspect]
     Indication: CONTRACEPTION
     Dosage: 1 DOSE(S), INTRAUTERINE
     Route: 015
     Dates: start: 20030625, end: 20030703

REACTIONS (3)
  - PROCTALGIA [None]
  - UTERINE PERFORATION [None]
  - UTERINE SPASM [None]
